FAERS Safety Report 4676664-4 (Version None)
Quarter: 2005Q2

REPORT INFORMATION
  Report Type: 
  Country: None (occurrence: None)
  Receive Date: 20050526
  Receipt Date: 20050517
  Transmission Date: 20051028
  Serious: Yes (Other)
  Sender: FDA-Public Use
  Company Number: 2003028646

PATIENT
  Age: 78 Year
  Sex: Male

DRUGS (6)
  1. NORVASC [Suspect]
     Indication: HYPERTENSION
     Dosage: 7.5 MG (DAILY), ORAL
     Route: 048
     Dates: start: 20030518
  2. CAPOTEN [Suspect]
     Indication: HYPERTENSION
     Dosage: ORAL
     Route: 048
  3. HYDROCHLOROTHIAZIDE [Suspect]
     Indication: ILL-DEFINED DISORDER
     Dosage: ORAL
     Route: 048
     Dates: end: 20050101
  4. CAPTOPRIL [Concomitant]
  5. VITAMINS NOS (VITAMINS NOS) [Concomitant]
  6. CITRACAL+D (CALCIUM CITRATE, ERGOCALCIFEROL) [Concomitant]

REACTIONS (15)
  - BLOOD POTASSIUM DECREASED [None]
  - BLOOD PRESSURE DECREASED [None]
  - BLOOD PRESSURE INCREASED [None]
  - COELIAC DISEASE [None]
  - CONDITION AGGRAVATED [None]
  - CONSTIPATION [None]
  - DRUG ADMINISTRATION ERROR [None]
  - DRUG EFFECT DECREASED [None]
  - GASTROINTESTINAL DISORDER [None]
  - NASOPHARYNGITIS [None]
  - OEDEMA PERIPHERAL [None]
  - RASH ERYTHEMATOUS [None]
  - REACTION TO MEDICAL AGENT PRESERVATIVES [None]
  - WEIGHT DECREASED [None]
  - WEIGHT GAIN POOR [None]
